FAERS Safety Report 7561465-X (Version None)
Quarter: 2011Q2

REPORT INFORMATION
  Report Type: 
  Country: None (occurrence: None)
  Receive Date: 20110621
  Receipt Date: 20110131
  Transmission Date: 20111010
  Serious: No
  Sender: FDA-Public Use
  Company Number: US-ASTRAZENECA-2011SE05411

PATIENT
  Age: 7 Year
  Sex: Female

DRUGS (3)
  1. PULMICORT FLEXHALER [Suspect]
     Indication: BRONCHITIS
     Route: 055
     Dates: start: 20110117, end: 20110101
  2. PULMICORT FLEXHALER [Suspect]
     Indication: ASTHMA
     Route: 055
     Dates: start: 20110117, end: 20110101
  3. ADVAIR DISKUS 100/50 [Concomitant]

REACTIONS (2)
  - SLEEP TERROR [None]
  - TREMOR [None]
